FAERS Safety Report 19072129 (Version 1)
Quarter: 2021Q1

REPORT INFORMATION
  Report Type: Spontaneous
  Country: US (occurrence: US)
  Receive Date: 20210329
  Receipt Date: 20210329
  Transmission Date: 20210420
  Serious: Yes (Hospitalization)
  Sender: FDA-Public Use
  Company Number: None

PATIENT
  Age: 60 Year
  Sex: Female
  Weight: 86.94 kg

DRUGS (7)
  1. ADDERALL [Concomitant]
     Active Substance: AMPHETAMINE ASPARTATE\AMPHETAMINE SULFATE\DEXTROAMPHETAMINE SACCHARATE\DEXTROAMPHETAMINE SULFATE
  2. LOSARTAN 100MG [Concomitant]
     Active Substance: LOSARTAN
  3. ALPRAZOLAM. [Concomitant]
     Active Substance: ALPRAZOLAM
  4. CAPECITABINE. [Suspect]
     Active Substance: CAPECITABINE
     Indication: COLON CANCER
     Route: 048
     Dates: start: 20210316
  5. SIMVASTATIN. [Concomitant]
     Active Substance: SIMVASTATIN
  6. ESCITALOPRAM [Concomitant]
     Active Substance: ESCITALOPRAM OXALATE
  7. TEMAZEPAM. [Concomitant]
     Active Substance: TEMAZEPAM

REACTIONS (1)
  - Cerebrovascular accident [None]

NARRATIVE: CASE EVENT DATE: 20210326
